FAERS Safety Report 23468861 (Version 1)
Quarter: 2024Q1

REPORT INFORMATION
  Report Type: Other
  Country: CN (occurrence: None)
  Receive Date: 20240202
  Receipt Date: 20240202
  Transmission Date: 20240410
  Serious: Yes (Death)
  Sender: FDA-Public Use
  Company Number: CN-ROCHE-3501730

PATIENT

DRUGS (2)
  1. RITUXIMAB [Suspect]
     Active Substance: RITUXIMAB
     Indication: Lymphoma
     Route: 065
  2. OPORTUZUMAB MONATOX [Suspect]
     Active Substance: OPORTUZUMAB MONATOX
     Indication: Lymphoma
     Route: 065

REACTIONS (1)
  - COVID-19 pneumonia [Fatal]
